FAERS Safety Report 15081735 (Version 4)
Quarter: 2020Q2

REPORT INFORMATION
  Report Type: Spontaneous
  Country: US (occurrence: US)
  Receive Date: 20180628
  Receipt Date: 20200618
  Transmission Date: 20200713
  Serious: Yes (Hospitalization)
  Sender: FDA-Public Use
  Company Number: US-PFIZER INC-2018257293

PATIENT
  Age: 59 Year
  Sex: Female

DRUGS (2)
  1. IBRANCE [Suspect]
     Active Substance: PALBOCICLIB
     Dosage: 125 MG, CYCLIC (Q DAY X21, 7 DAYS OFF/ONCE DAILY FOR 21 DAYS, THEN 7 DAYS OFF)
     Route: 048
     Dates: start: 20180322
  2. IBRANCE [Suspect]
     Active Substance: PALBOCICLIB
     Dosage: 100 MG, CYCLIC (ONCE DAILY X 21 DAYS, AND 7 DAYS OFF/DAILY FOR 21 DAYS THEN 7 DAYS OFF)
     Route: 048

REACTIONS (13)
  - Thrombosis [Recovered/Resolved]
  - Condition aggravated [Unknown]
  - Taste disorder [Not Recovered/Not Resolved]
  - Ageusia [Unknown]
  - Alopecia [Unknown]
  - Diarrhoea [Unknown]
  - Infection [Unknown]
  - White blood cell count decreased [Unknown]
  - Arthropod bite [Unknown]
  - Blood count abnormal [Unknown]
  - Abdominal discomfort [Unknown]
  - Functional gastrointestinal disorder [Unknown]
  - Product dose omission [Unknown]

NARRATIVE: CASE EVENT DATE: 20181021
